FAERS Safety Report 6318094-5 (Version None)
Quarter: 2009Q3

REPORT INFORMATION
  Report Type: 
  Country: None (occurrence: None)
  Receive Date: 20090821
  Receipt Date: 20090817
  Transmission Date: 20100115
  Serious: No
  Sender: FDA-Public Use
  Company Number: GB-EISAI INC.-E2020-05082-SPO-GB

PATIENT
  Age: 70 Year
  Sex: Female

DRUGS (5)
  1. ARICEPT [Suspect]
     Indication: DEMENTIA
     Route: 048
     Dates: start: 20090629, end: 20090714
  2. ASPIRIN [Concomitant]
     Dosage: 75 MG
     Route: 048
  3. AZATHIOPRINE [Concomitant]
     Indication: MYASTHENIA GRAVIS
     Route: 048
  4. CALCICHEW [Concomitant]
     Indication: OSTEOPOROSIS
     Route: 048
  5. FOSAMAX [Concomitant]
     Indication: OSTEOPOROSIS
     Route: 048

REACTIONS (5)
  - ANXIETY [None]
  - DELUSION [None]
  - HALLUCINATION [None]
  - INSOMNIA [None]
  - PSYCHOTIC BEHAVIOUR [None]
